FAERS Safety Report 4494107-0 (Version None)
Quarter: 2004Q4

REPORT INFORMATION
  Report Type: 
  Country: None (occurrence: None)
  Receive Date: 20041105
  Receipt Date: 20041026
  Transmission Date: 20050328
  Serious: Yes (Disabling)
  Sender: FDA-Public Use
  Company Number: JP-BRISTOL-MYERS SQUIBB COMPANY-12750444

PATIENT
  Age: 69 Year
  Sex: Male

DRUGS (4)
  1. GATIFLO TABS 100 MG [Suspect]
     Indication: CHRONIC SINUSITIS
     Dosage: 1ST COURSE 16-19-JUN-2004
     Route: 048
     Dates: start: 20040724, end: 20040728
  2. NORVASC [Concomitant]
     Route: 048
  3. EPADEL [Concomitant]
     Route: 048
  4. URINORM [Concomitant]
     Route: 048

REACTIONS (7)
  - ASTHENIA [None]
  - CONDITION AGGRAVATED [None]
  - HYPERGLYCAEMIA [None]
  - MALAISE [None]
  - POLYURIA [None]
  - SINUSITIS [None]
  - THIRST [None]
